FAERS Safety Report 14100137 (Version 3)
Quarter: 2017Q4

REPORT INFORMATION
  Report Type: Spontaneous
  Country: IE (occurrence: IE)
  Receive Date: 20171017
  Receipt Date: 20171106
  Transmission Date: 20180321
  Serious: Yes (Death, Hospitalization)
  Sender: FDA-Public Use
  Company Number: IE-BAYER-2017-192049

PATIENT
  Age: 75 Year
  Sex: Female

DRUGS (2)
  1. GADOVIST [Suspect]
     Active Substance: GADOBUTROL
     Indication: NUCLEAR MAGNETIC RESONANCE IMAGING
     Dosage: 9 ML, ONCE
     Route: 042
     Dates: start: 20170927, end: 20170927
  2. GADOVIST [Suspect]
     Active Substance: GADOBUTROL
     Indication: HYPOTHALAMO-PITUITARY DISORDER

REACTIONS (3)
  - Myocardial infarction [None]
  - Cardiac arrest [Fatal]
  - Malaise [None]

NARRATIVE: CASE EVENT DATE: 20170927
